FAERS Safety Report 6829658-4 (Version None)
Quarter: 2010Q3

REPORT INFORMATION
  Report Type: 
  Country: None (occurrence: None)
  Receive Date: 20100709
  Receipt Date: 20070430
  Transmission Date: 20110219
  Serious: No
  Sender: FDA-Public Use
  Company Number: US-PFIZER INC-2007018731

PATIENT
  Sex: Male
  Weight: 78.93 kg

DRUGS (4)
  1. CHANTIX [Suspect]
     Indication: SMOKING CESSATION THERAPY
     Dates: start: 20070101, end: 20070301
  2. CHANTIX [Suspect]
     Indication: NICOTINE DEPENDENCE
  3. HERBAL PREPARATION [Concomitant]
  4. VITAMINS [Concomitant]

REACTIONS (6)
  - ABNORMAL DREAMS [None]
  - BURNING SENSATION [None]
  - HEPATIC ENZYME ABNORMAL [None]
  - PAIN [None]
  - VIRAL LOAD DECREASED [None]
  - WEIGHT INCREASED [None]
